FAERS Safety Report 9820493 (Version 4)
Quarter: 2014Q3

REPORT INFORMATION
  Report Type: Report from Study
  Country: JP (occurrence: JP)
  Receive Date: 20140116
  Receipt Date: 20140711
  Transmission Date: 20150326
  Serious: Yes (Life-Threatening, Hospitalization)
  Sender: FDA-Public Use
  Company Number: JP-SA-THYM-1003808

PATIENT
  Age: 6 Year
  Sex: Male
  Weight: 16 kg

DRUGS (8)
  1. SOLU-MEDROL [Concomitant]
     Active Substance: METHYLPREDNISOLONE SODIUM SUCCINATE
     Indication: PROPHYLAXIS
     Dates: start: 20130423, end: 20130427
  2. ATARAX-P [Concomitant]
     Active Substance: HYDROXYZINE HYDROCHLORIDE
     Indication: PROPHYLAXIS
     Dates: start: 20130423, end: 20130427
  3. CICLOSPORIN [Concomitant]
     Active Substance: CYCLOSPORINE
     Indication: MYELODYSPLASTIC SYNDROME
     Dosage: 60 MG, BID
     Route: 048
     Dates: start: 20130423
  4. THYMOGLOBULINE [Suspect]
     Active Substance: LAPINE T-LYMPHOCYTE IMMUNE GLOBULIN
     Indication: MYELODYSPLASTIC SYNDROME
     Dosage: 64 MG, QD
     Route: 042
     Dates: start: 20130423, end: 20130427
  5. SULFAMETHOXAZOLE/TRIMETHOPRIM [Concomitant]
     Active Substance: SULFAMETHOXAZOLE\TRIMETHOPRIM
     Indication: ANTIFUNGAL PROPHYLAXIS
     Dosage: 0.35 G, BID
     Route: 048
     Dates: start: 20130427
  6. PREDNISOLONE. [Concomitant]
     Active Substance: PREDNISOLONE
     Indication: PROPHYLAXIS
     Dosage: 5.7 MG, TID
     Route: 048
     Dates: start: 20130428
  7. FAMOTIDINE. [Concomitant]
     Active Substance: FAMOTIDINE
     Indication: PROPHYLAXIS AGAINST GASTROINTESTINAL ULCER
     Dosage: 10 MG, QD
     Route: 048
     Dates: start: 20130428
  8. MEROPEN [Concomitant]
     Active Substance: MEROPENEM
     Indication: INFECTION PROPHYLAXIS
     Dates: start: 20130504, end: 20130507

REACTIONS (13)
  - Jaundice [Recovered/Resolved]
  - Oliguria [Unknown]
  - Hypoxia [Recovered/Resolved]
  - Off label use [Unknown]
  - Pyrexia [Recovering/Resolving]
  - Liver disorder [Recovered/Resolved]
  - Hepatomegaly [Recovered/Resolved]
  - Ascites [Unknown]
  - Serum sickness [Recovering/Resolving]
  - Pleural effusion [Unknown]
  - Renal failure [Unknown]
  - Rash [Recovered/Resolved]
  - Hepatorenal syndrome [Unknown]

NARRATIVE: CASE EVENT DATE: 20130502
